FAERS Safety Report 6503108-X (Version None)
Quarter: 2009Q4

REPORT INFORMATION
  Report Type: 
  Country: None (occurrence: None)
  Receive Date: 20091217
  Receipt Date: 20091209
  Transmission Date: 20100525
  Serious: Yes (Other)
  Sender: FDA-Public Use
  Company Number: PHHY2009IT17474

PATIENT
  Sex: Female

DRUGS (3)
  1. FEMARA [Suspect]
     Indication: BREAST CANCER
     Dosage: 2.5 MG DAILY
     Route: 048
     Dates: start: 20080423, end: 20081231
  2. AROMASIN [Concomitant]
     Dosage: UNK
     Dates: start: 20090407, end: 20090430
  3. TAMOXIFEN CITRATE [Concomitant]
     Dosage: 20 MG/DAY

REACTIONS (5)
  - GENITAL PROLAPSE [None]
  - HYPERCHOLESTEROLAEMIA [None]
  - HYSTERECTOMY [None]
  - OOPHORECTOMY [None]
  - TACHYARRHYTHMIA [None]
